FAERS Safety Report 6308449-7 (Version None)
Quarter: 2009Q3

REPORT INFORMATION
  Report Type: 
  Country: None (occurrence: None)
  Receive Date: 20090811
  Receipt Date: 20090729
  Transmission Date: 20100115
  Serious: Yes (Hospitalization)
  Sender: FDA-Public Use
  Company Number: 1000001534

PATIENT
  Age: 40 Year
  Sex: Female

DRUGS (6)
  1. ESCITALOPRAM [Suspect]
     Indication: ANXIETY
     Dosage: 1 DOSAGE FORMS (1 DOSAGE FORMS, 1 IN 1 D), ORAL
     Route: 048
     Dates: start: 20080526, end: 20080827
  2. DEPAKINE CHRONO (500 MILLIGRAM, TABLETS) [Suspect]
     Dosage: 1000 MG (500 MG, 2 IN 1 D) ORAL
     Route: 048
     Dates: start: 20080526, end: 20080814
  3. MALOCIDE [Concomitant]
  4. ADIAZINE [Concomitant]
  5. CLARITIN [Concomitant]
  6. TERCIAN [Concomitant]

REACTIONS (5)
  - CHOLESTASIS [None]
  - CYTOLYTIC HEPATITIS [None]
  - MICROLITHIASIS [None]
  - PYREXIA [None]
  - VISUAL IMPAIRMENT [None]
